FAERS Safety Report 18424196 (Version 2)
Quarter: 2021Q4

REPORT INFORMATION
  Report Type: Spontaneous
  Country: US (occurrence: US)
  Receive Date: 20201025
  Receipt Date: 20211227
  Transmission Date: 20220303
  Serious: Yes (Other)
  Sender: FDA-Public Use
  Company Number: US-PURDUE PHARMA-USA-2020-0151388

PATIENT
  Sex: Male

DRUGS (10)
  1. OXYCONTIN [Suspect]
     Active Substance: OXYCODONE HYDROCHLORIDE
     Indication: Spinal osteoarthritis
     Dosage: UNK
     Route: 048
  2. HYDROCODONE BITARTRATE [Suspect]
     Active Substance: HYDROCODONE BITARTRATE
     Indication: Product used for unknown indication
     Dosage: UNK
     Route: 065
  3. ACETAMINOPHEN\HYDROCODONE BITARTRATE [Suspect]
     Active Substance: ACETAMINOPHEN\HYDROCODONE BITARTRATE
     Indication: Spinal osteoarthritis
     Dosage: UNK
     Route: 048
  4. ULTRAM [Suspect]
     Active Substance: TRAMADOL HYDROCHLORIDE
     Indication: Spinal osteoarthritis
     Dosage: 1-2 TABS
     Route: 048
     Dates: start: 20130228
  5. LIDODERM [Suspect]
     Active Substance: LIDOCAINE
     Indication: Spinal osteoarthritis
     Dosage: UNK
     Route: 062
     Dates: start: 20130228
  6. VICODIN [Suspect]
     Active Substance: ACETAMINOPHEN\HYDROCODONE BITARTRATE
     Indication: Spinal osteoarthritis
     Dosage: UNK
     Route: 065
     Dates: start: 20130418
  7. ACETAMINOPHEN\OXYCODONE HYDROCHLORIDE\OXYCODONE TEREPHTHALATE [Suspect]
     Active Substance: ACETAMINOPHEN\OXYCODONE HYDROCHLORIDE\OXYCODONE TEREPHTHALATE
     Indication: Pain
     Dosage: 10-325MG
     Route: 048
     Dates: start: 20130515
  8. TOPAMAX [Suspect]
     Active Substance: TOPIRAMATE
     Indication: Spinal osteoarthritis
     Dosage: 25 MG, Q6H, 1 TAB BY MOUTH
     Route: 048
     Dates: start: 20130515
  9. CYMBALTA [Suspect]
     Active Substance: DULOXETINE HYDROCHLORIDE
     Indication: Spinal osteoarthritis
     Dosage: 30 MG, 1 TAB BY MOUTH
     Route: 048
     Dates: start: 20130709
  10. VIAGRA [Suspect]
     Active Substance: SILDENAFIL CITRATE
     Indication: Spinal osteoarthritis
     Dosage: 50 MG, UNK
     Route: 048
     Dates: start: 20130722

REACTIONS (4)
  - Drug dependence [Unknown]
  - Pain [Unknown]
  - Emotional distress [Unknown]
  - Drug withdrawal syndrome [Unknown]
